FAERS Safety Report 24077527 (Version 1)
Quarter: 2024Q3

REPORT INFORMATION
  Report Type: Spontaneous
  Country: JP (occurrence: JP)
  Receive Date: 20240711
  Receipt Date: 20240711
  Transmission Date: 20241017
  Serious: No
  Sender: PIERRE FABRE MEDICAMENT
  Company Number: JP-PFM-2023-03736

PATIENT
  Age: 0 Year
  Sex: Male
  Weight: 7.2 kg

DRUGS (5)
  1. PROPRANOLOL HYDROCHLORIDE [Suspect]
     Active Substance: PROPRANOLOL HYDROCHLORIDE
     Indication: Infantile haemangioma
     Dosage: 0.5 MG/KG, BID (2/DAY)
     Route: 048
     Dates: start: 20200902, end: 20200903
  2. PROPRANOLOL HYDROCHLORIDE [Suspect]
     Active Substance: PROPRANOLOL HYDROCHLORIDE
     Dosage: 1 MG/KG, BID (2/DAY)
     Route: 048
     Dates: start: 20200904, end: 20200906
  3. PROPRANOLOL HYDROCHLORIDE [Suspect]
     Active Substance: PROPRANOLOL HYDROCHLORIDE
     Dosage: 1.5 MG/KG, BID (2/DAY)
     Route: 048
     Dates: start: 20200907, end: 20200921
  4. PALDES [Concomitant]
     Indication: Product used for unknown indication
     Dosage: UNK
     Route: 061
  5. HEPARINOID [Concomitant]
     Indication: Product used for unknown indication
     Dosage: UNK
     Route: 061

REACTIONS (1)
  - Asthma [Recovered/Resolved]

NARRATIVE: CASE EVENT DATE: 20200921
